FAERS Safety Report 8161844-6 (Version None)
Quarter: 2012Q1

REPORT INFORMATION
  Report Type: 
  Country: None (occurrence: None)
  Receive Date: 20120224
  Receipt Date: 20110715
  Transmission Date: 20120608
  Serious: Yes (Other)
  Sender: FDA-Public Use
  Company Number: US-BRISTOL-MYERS SQUIBB COMPANY-15907827

PATIENT
  Age: 61 Year
  Sex: Female
  Weight: 82 kg

DRUGS (2)
  1. ONGLYZA [Suspect]
     Indication: DIABETES MELLITUS
     Dosage: 1 TABS:2.5/1000MG
     Dates: start: 20110101, end: 20110601
  2. METFORMIN HCL [Suspect]

REACTIONS (4)
  - BLOOD GLUCOSE INCREASED [None]
  - SURGERY [None]
  - GASTROINTESTINAL DISORDER [None]
  - VOMITING [None]
